FAERS Safety Report 25302941 (Version 1)
Quarter: 2025Q2

REPORT INFORMATION
  Report Type: Spontaneous
  Country: FR (occurrence: FR)
  Receive Date: 20250512
  Receipt Date: 20250512
  Transmission Date: 20250717
  Serious: Yes (Hospitalization)
  Sender: PRINSTON PHARMACEUTICAL
  Company Number: FR-PRINSTON PHARMACEUTICAL INC.-2025PRN00164

PATIENT
  Age: 28 Year
  Sex: Female

DRUGS (2)
  1. FUROSEMIDE [Suspect]
     Active Substance: FUROSEMIDE
  2. HYDROCHLOROTHIAZIDE [Suspect]
     Active Substance: HYDROCHLOROTHIAZIDE

REACTIONS (3)
  - Ventricular extrasystoles [Unknown]
  - Electrocardiogram QT prolonged [Unknown]
  - Toxicity to various agents [Unknown]
